FAERS Safety Report 4777844-X (Version None)
Quarter: 2005Q3

REPORT INFORMATION
  Report Type: 
  Country: None (occurrence: None)
  Receive Date: 20050915
  Receipt Date: 20050825
  Transmission Date: 20060218
  Serious: Yes (Death, Life-Threatening, Hospitalization, Other)
  Sender: FDA-Public Use
  Company Number: US_020382774

PATIENT
  Age: 39 Year
  Sex: Male
  Weight: 61 kg

DRUGS (6)
  1. ZYPREXA [Suspect]
     Indication: SCHIZOPHRENIA
     Dosage: 10 MG DAY
     Dates: start: 20010628, end: 20020309
  2. PROTHIADEN [Concomitant]
  3. LEVOTOMIN (LEVOMEPROMAZINE MALEATE) [Concomitant]
  4. ROHYPNOL (FLUNITRAZEPAM) [Concomitant]
  5. LIMAS (LITHIUM CARBONATE) [Concomitant]
  6. HALCION [Concomitant]

REACTIONS (31)
  - ABNORMAL BEHAVIOUR [None]
  - ANOREXIA [None]
  - APALLIC SYNDROME [None]
  - BLOOD PRESSURE INADEQUATELY CONTROLLED [None]
  - DIABETIC HYPEROSMOLAR COMA [None]
  - DIALYSIS [None]
  - DISSEMINATED INTRAVASCULAR COAGULATION [None]
  - DIZZINESS [None]
  - EYE DISORDER [None]
  - GENERAL PHYSICAL CONDITION ABNORMAL [None]
  - HAEMODIALYSIS [None]
  - HAEMODYNAMIC INSTABILITY [None]
  - HEPATIC STEATOSIS [None]
  - HYPERHIDROSIS [None]
  - IMPATIENCE [None]
  - NASOPHARYNGITIS [None]
  - NEUROLEPTIC MALIGNANT SYNDROME [None]
  - PHARYNGEAL OEDEMA [None]
  - RENAL DISORDER [None]
  - RESTLESSNESS [None]
  - RHABDOMYOLYSIS [None]
  - SHOCK [None]
  - STAPHYLOCOCCAL INFECTION [None]
  - TACHYCARDIA [None]
  - THIRST [None]
  - TREMOR [None]
  - URINARY TRACT INFECTION [None]
  - VOMITING [None]
  - WATER INTOXICATION [None]
  - WEIGHT INCREASED [None]
  - WHITE BLOOD CELL COUNT INCREASED [None]
